FAERS Safety Report 8478406 (Version 3)
Quarter: 2012Q4

REPORT INFORMATION
  Report Type: 
  Country: GB (occurrence: GB)
  Receive Date: 20120327
  Receipt Date: 20121001
  Transmission Date: 20130627
  Serious: Yes (Death)
  Sender: FDA-Public Use
  Company Number: GB-ROCHE-1052896

PATIENT
  Age: 98 Year
  Sex: Female

DRUGS (20)
  1. LUCENTIS [Suspect]
     Indication: AGE-RELATED MACULAR DEGENERATION
     Route: 050
     Dates: start: 20101028, end: 20111212
  2. PEPPERMINT [Concomitant]
     Route: 048
     Dates: start: 20110912
  3. PREGABALIN [Concomitant]
     Route: 065
     Dates: start: 20110701
  4. LACTULOSE [Concomitant]
     Route: 065
     Dates: start: 20110329
  5. FYBOGEL [Concomitant]
     Route: 065
     Dates: start: 20110110
  6. SODIUM PICOSULFATE [Concomitant]
     Route: 065
     Dates: start: 20101115
  7. ADALAT [Concomitant]
     Route: 065
     Dates: start: 20101111
  8. IBUPROFEN [Concomitant]
     Route: 065
     Dates: start: 20101111
  9. TOLTERODINE TARTRATE [Concomitant]
     Route: 065
     Dates: start: 20100329
  10. OMEPRAZOLE [Concomitant]
     Route: 065
     Dates: start: 20100127
  11. TRAMADOL [Concomitant]
     Route: 065
     Dates: start: 20090121
  12. VISCOTEARS [Concomitant]
     Route: 065
     Dates: start: 20080227
  13. DOUBLEBASE [Concomitant]
     Route: 065
     Dates: start: 20080130
  14. FERROUS SULFATE [Concomitant]
     Route: 065
     Dates: start: 20071106
  15. TEMAZEPAM [Concomitant]
     Route: 065
     Dates: start: 20071106
  16. SOTALOL [Concomitant]
     Route: 065
     Dates: start: 20071106
  17. VITAMIN [Concomitant]
     Route: 065
     Dates: start: 20071106
  18. BENDROFLUMETHIAZIDE [Concomitant]
     Route: 065
     Dates: start: 20071106
  19. LACRI-LUBE [Concomitant]
     Route: 065
     Dates: start: 20070424
  20. AMITRIPTYLINE [Concomitant]
     Route: 065
     Dates: start: 20070209

REACTIONS (1)
  - Intestinal obstruction [Fatal]
